FAERS Safety Report 4546387-0 (Version None)
Quarter: 2005Q1

REPORT INFORMATION
  Report Type: 
  Country: None (occurrence: None)
  Receive Date: 20050103
  Receipt Date: 20041209
  Transmission Date: 20050727
  Serious: Yes (Other)
  Sender: FDA-Public Use
  Company Number: EWC041241802

PATIENT
  Sex: Female

DRUGS (3)
  1. HUMULIN-HUMAN INSULIN (RDNA) UNKNOWN FORMULATION (HU [Suspect]
  2. ACTRAPID (INSULIN) [Concomitant]
  3. PROTOPHANE (INSULIN HUMAN) [Concomitant]

REACTIONS (1)
  - ANAPHYLACTIC REACTION [None]
